FAERS Safety Report 21666730 (Version 2)
Quarter: 2022Q4

REPORT INFORMATION
  Report Type: Spontaneous
  Country: US (occurrence: US)
  Receive Date: 20221201
  Receipt Date: 20221206
  Transmission Date: 20230113
  Serious: No
  Sender: FDA-Public Use
  Company Number: US-002147023-NVSC2022US277928

PATIENT
  Sex: Male

DRUGS (5)
  1. OCTREOTIDE [Suspect]
     Active Substance: OCTREOTIDE
     Indication: Respiratory distress
     Dosage: UNK
     Route: 065
  2. OCTREOTIDE [Suspect]
     Active Substance: OCTREOTIDE
     Indication: Pleural effusion
  3. OCTREOTIDE [Suspect]
     Active Substance: OCTREOTIDE
  4. SIROLIMUS [Suspect]
     Active Substance: SIROLIMUS
     Indication: Respiratory distress
     Dosage: UNK
     Route: 065
  5. SIROLIMUS [Suspect]
     Active Substance: SIROLIMUS
     Indication: Pleural effusion

REACTIONS (1)
  - Drug ineffective for unapproved indication [Unknown]
